FAERS Safety Report 6506022-9 (Version None)
Quarter: 2009Q4

REPORT INFORMATION
  Report Type: 
  Country: None (occurrence: None)
  Receive Date: 20091217
  Receipt Date: 20091217
  Transmission Date: 20100525
  Serious: No
  Sender: FDA-Public Use
  Company Number: None

PATIENT
  Age: 57 Year
  Sex: Male
  Weight: 70.3075 kg

DRUGS (2)
  1. VANCOMYCIN [Suspect]
     Indication: WOUND INFECTION
  2. CLINDAMYCIN [Suspect]

REACTIONS (3)
  - CONDITION AGGRAVATED [None]
  - DEAFNESS UNILATERAL [None]
  - WOUND INFECTION [None]
